FAERS Safety Report 6100514-2 (Version None)
Quarter: 2009Q1

REPORT INFORMATION
  Report Type: 
  Country: None (occurrence: None)
  Receive Date: 20090303
  Receipt Date: 20090227
  Transmission Date: 20090719
  Serious: Yes (Hospitalization)
  Sender: FDA-Public Use
  Company Number: US-BRISTOL-MYERS SQUIBB COMPANY-14524615

PATIENT
  Age: 68 Year
  Sex: Female
  Weight: 64 kg

DRUGS (11)
  1. ORENCIA [Suspect]
     Indication: RHEUMATOID ARTHRITIS
  2. METHOTREXATE [Concomitant]
  3. TREXALL [Concomitant]
  4. NOVOLOG [Concomitant]
  5. METFORMIN HCL [Concomitant]
  6. ARTHROTEC [Concomitant]
     Dosage: 75MG DAILY PRN
  7. GLYBURIDE [Concomitant]
  8. BENAZEPRIL HYDROCHLORIDE [Concomitant]
     Dates: start: 20090218
  9. SIMVASTATIN [Concomitant]
     Dates: start: 20090218
  10. METOPROLOL [Concomitant]
     Dates: start: 20090218
  11. PLAVIX [Concomitant]
     Dates: start: 20090218

REACTIONS (1)
  - CORONARY ARTERY OCCLUSION [None]
